FAERS Safety Report 4624430-8 (Version None)
Quarter: 2005Q1

REPORT INFORMATION
  Report Type: 
  Country: None (occurrence: None)
  Receive Date: 20050330
  Receipt Date: 20050330
  Transmission Date: 20050727
  Serious: Yes (Hospitalization)
  Sender: FDA-Public Use
  Company Number: None

PATIENT
  Sex: Female
  Weight: 50 kg

DRUGS (11)
  1. VORICONAZOLE [Suspect]
     Indication: ASPERGILLOSIS
     Dosage: 300 MG   BID   ORAL
     Route: 048
     Dates: start: 20050101, end: 20050329
  2. PROGRAF [Concomitant]
  3. BACTRIM DS [Concomitant]
  4. KEPPRA [Concomitant]
  5. MIRALAX [Concomitant]
  6. MAGOX [Concomitant]
  7. PREDNISONE TAB [Concomitant]
  8. PREVACID [Concomitant]
  9. VALCYTE [Concomitant]
  10. SODIUM BICARBONATE [Concomitant]
  11. AMLODIPINE [Concomitant]

REACTIONS (1)
  - GAMMA-GLUTAMYLTRANSFERASE INCREASED [None]
